FAERS Safety Report 10533243 (Version 1)
Quarter: 2014Q4

REPORT INFORMATION
  Report Type: Spontaneous
  Country: US (occurrence: None)
  Receive Date: 20141021
  Receipt Date: 20141021
  Transmission Date: 20150529
  Serious: Yes (Other)
  Sender: FDA-Public Use
  Company Number: None

PATIENT
  Age: 40 Year
  Weight: 99.79 kg

DRUGS (3)
  1. DULOXETINE HYDROCHLORIDE. [Suspect]
     Active Substance: DULOXETINE HYDROCHLORIDE
     Indication: HYPOAESTHESIA
     Dosage: 1 PILL
     Route: 048
     Dates: start: 20141001, end: 20141015
  2. DULOXETINE HYDROCHLORIDE. [Suspect]
     Active Substance: DULOXETINE HYDROCHLORIDE
     Indication: MIXED CONNECTIVE TISSUE DISEASE
     Dosage: 1 PILL
     Route: 048
     Dates: start: 20141001, end: 20141015
  3. DULOXETINE HYDROCHLORIDE. [Suspect]
     Active Substance: DULOXETINE HYDROCHLORIDE
     Indication: NEURALGIA
     Dosage: 1 PILL
     Route: 048
     Dates: start: 20141001, end: 20141015

REACTIONS (7)
  - Crying [None]
  - Depression [None]
  - Panic attack [None]
  - Suicidal ideation [None]
  - Mental disorder [None]
  - Product substitution issue [None]
  - Impaired work ability [None]

NARRATIVE: CASE EVENT DATE: 20140114
